FAERS Safety Report 12795748 (Version 2)
Quarter: 2016Q3

REPORT INFORMATION
  Report Type: Spontaneous
  Country: IT (occurrence: IT)
  Receive Date: 20160929
  Receipt Date: 20160930
  Transmission Date: 20161109
  Serious: Yes (Other)
  Sender: FDA-Public Use
  Company Number: IT-TEVA-696405ACC

PATIENT
  Age: 62 Year
  Sex: Male
  Weight: 130 kg

DRUGS (1)
  1. CARBOPLATINO TEVA - 10 MG/ML - TEVA PHARMA B.V. [Suspect]
     Active Substance: CARBOPLATIN
     Indication: MESOTHELIOMA MALIGNANT
     Dosage: 625 MG CYCLICAL
     Route: 042
     Dates: start: 20160823, end: 20160913

REACTIONS (6)
  - Retching [Recovered/Resolved]
  - Paraesthesia [Unknown]
  - Cough [Recovered/Resolved]
  - Dyspnoea [Unknown]
  - Erythema [Recovered/Resolved]
  - Bronchospasm [Recovered/Resolved]

NARRATIVE: CASE EVENT DATE: 20160913
